FAERS Safety Report 12166184 (Version 4)
Quarter: 2018Q1

REPORT INFORMATION
  Report Type: Spontaneous
  Country: US (occurrence: US)
  Receive Date: 20160309
  Receipt Date: 20180123
  Transmission Date: 20180508
  Serious: Yes (Hospitalization)
  Sender: FDA-Public Use
  Company Number: US-BIOGEN-2014BI098819

PATIENT
  Age: 40 Year
  Sex: Female

DRUGS (4)
  1. AVONEX [Suspect]
     Active Substance: INTERFERON BETA-1A
     Route: 030
     Dates: start: 20100104, end: 20131201
  2. AVONEX [Suspect]
     Active Substance: INTERFERON BETA-1A
     Route: 030
     Dates: start: 20140314, end: 20140618
  3. AVONEX [Suspect]
     Active Substance: INTERFERON BETA-1A
     Indication: MULTIPLE SCLEROSIS
     Route: 030
     Dates: start: 20050911
  4. AVONEX [Suspect]
     Active Substance: INTERFERON BETA-1A
     Route: 030
     Dates: end: 20140707

REACTIONS (24)
  - Stress [Not Recovered/Not Resolved]
  - Vomiting [Recovered/Resolved]
  - Weight increased [Not Recovered/Not Resolved]
  - Abdominal pain upper [Unknown]
  - Fatigue [Recovered/Resolved]
  - Urinary retention postoperative [Recovered/Resolved]
  - Malaise [Unknown]
  - Gluten sensitivity [Not Recovered/Not Resolved]
  - Limb discomfort [Recovered/Resolved]
  - Alopecia [Not Recovered/Not Resolved]
  - Nausea [Recovered/Resolved]
  - Feeling of body temperature change [Unknown]
  - Paraesthesia [Recovered/Resolved]
  - Dehydration [Recovered/Resolved]
  - Diarrhoea [Not Recovered/Not Resolved]
  - Gastritis [Not Recovered/Not Resolved]
  - Tremor [Unknown]
  - Gastric disorder [Unknown]
  - Multiple sclerosis relapse [Unknown]
  - Gallbladder disorder [Recovered/Resolved]
  - Weight decreased [Not Recovered/Not Resolved]
  - Post cholecystectomy syndrome [Not Recovered/Not Resolved]
  - Platelet count decreased [Unknown]
  - Influenza like illness [Recovered/Resolved]

NARRATIVE: CASE EVENT DATE: 2014
